FAERS Safety Report 18111049 (Version 1)
Quarter: 2020Q3

REPORT INFORMATION
  Report Type: Other
  Country: BH (occurrence: BH)
  Receive Date: 20200804
  Receipt Date: 20200804
  Transmission Date: 20201103
  Serious: Yes (Hospitalization, Other)
  Sender: FDA-Public Use
  Company Number: BH-DEXPHARM-20200674

PATIENT
  Age: 2 Year

DRUGS (10)
  1. CEFTRIAXONE. [Suspect]
     Active Substance: CEFTRIAXONE
  2. OMEPRAZOLE. [Suspect]
     Active Substance: OMEPRAZOLE
  3. ONDANSETRON [Suspect]
     Active Substance: ONDANSETRON
  4. PHENYTOIN. [Suspect]
     Active Substance: PHENYTOIN
     Indication: SEIZURE
     Route: 048
  5. CLINDAMYCIN. [Suspect]
     Active Substance: CLINDAMYCIN
  6. IBUPROFEN. [Suspect]
     Active Substance: IBUPROFEN
  7. CEFTAZIDIME. [Suspect]
     Active Substance: CEFTAZIDIME
  8. CLONAZEPAM. [Suspect]
     Active Substance: CLONAZEPAM
  9. PARACETAMOL [Suspect]
     Active Substance: ACETAMINOPHEN
  10. CARBAMAZEPINE. [Suspect]
     Active Substance: CARBAMAZEPINE
     Indication: SEIZURE
     Route: 048

REACTIONS (1)
  - Drug-induced liver injury [Unknown]
